FAERS Safety Report 12666879 (Version 1)
Quarter: 2016Q3

REPORT INFORMATION
  Report Type: Spontaneous
  Country: US (occurrence: None)
  Receive Date: 20160818
  Receipt Date: 20160818
  Transmission Date: 20161109
  Serious: Yes (Other)
  Sender: FDA-Public Use
  Company Number: None

PATIENT
  Age: 15 Year

DRUGS (1)
  1. VALPROATE [Suspect]
     Active Substance: VALPROIC ACID
     Indication: BIPOLAR DISORDER
     Route: 048
     Dates: start: 20160515, end: 20160705

REACTIONS (4)
  - Condition aggravated [None]
  - Drug level decreased [None]
  - Product formulation issue [None]
  - Mood altered [None]

NARRATIVE: CASE EVENT DATE: 20160701
